FAERS Safety Report 7681321-6 (Version None)
Quarter: 2011Q3

REPORT INFORMATION
  Report Type: 
  Country: None (occurrence: None)
  Receive Date: 20110812
  Receipt Date: 20110808
  Transmission Date: 20111222
  Serious: Yes (Hospitalization, Other)
  Sender: FDA-Public Use
  Company Number: US-BAYER-201037824NA

PATIENT
  Age: 39 Year
  Sex: Female
  Weight: 81.633 kg

DRUGS (5)
  1. YAZ [Suspect]
     Indication: CONTRACEPTION
     Dosage: UNK
     Route: 048
     Dates: start: 20080901, end: 20100201
  2. YAZ [Suspect]
     Indication: PREMENSTRUAL SYNDROME
  3. YAZ [Suspect]
     Indication: DYSPNOEA
  4. YAZ [Suspect]
     Indication: MUSCLE SPASMS
  5. LEXAPRO [Concomitant]

REACTIONS (7)
  - GALLBLADDER DISORDER [None]
  - ABDOMINAL ADHESIONS [None]
  - GALLBLADDER INJURY [None]
  - CHOLELITHIASIS [None]
  - ABDOMINAL PAIN [None]
  - PANCREATITIS ACUTE [None]
  - CHOLECYSTITIS CHRONIC [None]
